FAERS Safety Report 22873766 (Version 3)
Quarter: 2023Q4

REPORT INFORMATION
  Report Type: Spontaneous
  Country: MX (occurrence: None)
  Receive Date: 20230828
  Receipt Date: 20231005
  Transmission Date: 20240110
  Serious: Yes (Other)
  Sender: FDA-Public Use
  Company Number: 2023A187844

PATIENT
  Age: 14488 Day
  Sex: Female
  Weight: 60 kg

DRUGS (11)
  1. ANIFROLUMAB [Suspect]
     Active Substance: ANIFROLUMAB
     Indication: Systemic lupus erythematosus
     Route: 042
     Dates: start: 20230809, end: 20230809
  2. ANIFROLUMAB [Suspect]
     Active Substance: ANIFROLUMAB
     Indication: Systemic lupus erythematosus
     Route: 042
  3. SARS-COV-2 [Concomitant]
     Active Substance: SARS-COV-2
  4. MYCOPHENOLATE MOFETIL [Concomitant]
     Active Substance: MYCOPHENOLATE MOFETIL
  5. PREDNISONE [Concomitant]
     Active Substance: PREDNISONE
  6. HYDROXYCHLOROQUINE [Concomitant]
     Active Substance: HYDROXYCHLOROQUINE
  7. CALCIUM AND VITAMIN D 1 [Concomitant]
  8. INSULIN DEGLUDEC [Concomitant]
     Active Substance: INSULIN DEGLUDEC
  9. METFORMIN [Concomitant]
     Active Substance: METFORMIN HYDROCHLORIDE
  10. SITAGLIPTIN [Concomitant]
     Active Substance: SITAGLIPTIN
  11. DAPAGLIFLOZIN PROPANEDIOL\METFORMIN HYDROCHLORIDE [Concomitant]
     Active Substance: DAPAGLIFLOZIN PROPANEDIOL\METFORMIN HYDROCHLORIDE

REACTIONS (3)
  - Overdose [Unknown]
  - Herpes zoster [Unknown]
  - Extra dose administered [Unknown]

NARRATIVE: CASE EVENT DATE: 20230809
